FAERS Safety Report 25862541 (Version 1)
Quarter: 2025Q3

REPORT INFORMATION
  Report Type: Report from Study
  Country: US (occurrence: US)
  Receive Date: 20250930
  Receipt Date: 20250930
  Transmission Date: 20251020
  Serious: Yes (Other)
  Sender: ROCHE
  Company Number: US-ROCHE-10000398069

PATIENT
  Age: 40 Year
  Sex: Female

DRUGS (1)
  1. ACTEMRA ACTPEN [Suspect]
     Active Substance: TOCILIZUMAB
     Indication: Systemic scleroderma
     Dosage: INJECT THE CONTENTS OF A DEVICE UNDER THE SKIN ONCE A WEEK (EVERY 7 DAYS)
     Route: 058

REACTIONS (2)
  - Neoplasm [Unknown]
  - Illness [Unknown]
